FAERS Safety Report 6642824-6 (Version None)
Quarter: 2010Q1

REPORT INFORMATION
  Report Type: 
  Country: None (occurrence: None)
  Receive Date: 20100319
  Receipt Date: 20100310
  Transmission Date: 20100710
  Serious: Yes (Other)
  Sender: FDA-Public Use
  Company Number: US-ELI_LILLY_AND_COMPANY-US200906005296

PATIENT
  Sex: Female
  Weight: 92.063 kg

DRUGS (9)
  1. BYETTA [Suspect]
     Dosage: UNK, UNK
     Dates: start: 20060320, end: 20081101
  2. LISINOPRIL [Concomitant]
  3. HYDROCHLOROTHIAZIDE [Concomitant]
     Dosage: UNK, UNKNOWN
  4. LEVOTHYROXINE                      /00068001/ [Concomitant]
     Dosage: 112 MG, UNK
  5. PAROXETINE HCL [Concomitant]
  6. GLIMEPIRIDE [Concomitant]
  7. ACTOS [Concomitant]
  8. METFORMIN [Concomitant]
  9. HYDROCODONE [Concomitant]

REACTIONS (3)
  - CHEST PAIN [None]
  - PANCREATITIS ACUTE [None]
  - RENAL INJURY [None]
